FAERS Safety Report 8447530 (Version 3)
Quarter: 2013Q3

REPORT INFORMATION
  Report Type: Report from Study
  Country: US (occurrence: US)
  Receive Date: 20120308
  Receipt Date: 20130923
  Transmission Date: 20140515
  Serious: Yes (Death, Other)
  Sender: FDA-Public Use
  Company Number: US-ROCHE-708218

PATIENT
  Sex: Female

DRUGS (5)
  1. TRASTUZUMAB [Suspect]
     Indication: HER-2 POSITIVE BREAST CANCER
     Dosage: LOADING DOSE; OVER 90 MINUTES, DAY 1 CYCLE 1 FOUR 21-DAY CYCLES
     Route: 042
  2. TRASTUZUMAB [Suspect]
     Dosage: OVER 30-60 MIN ON DAY 1, 8 AND 15 FOUR 21-DAY CYCLES
     Route: 042
  3. TRASTUZUMAB [Suspect]
     Dosage: FOUR 21-DAY CYCLES
     Route: 042
  4. DOCETAXEL [Suspect]
     Indication: HER-2 POSITIVE BREAST CANCER
     Dosage: FOUR 21-DAY CYCLES
     Route: 042
  5. CYCLOPHOSPHAMIDE [Suspect]
     Indication: HER-2 POSITIVE BREAST CANCER
     Dosage: OVER 15-30 MIN FOUR 21-DAY CYCLES
     Route: 042

REACTIONS (25)
  - Aspiration [Fatal]
  - Lung infiltration [Fatal]
  - Ejection fraction decreased [Unknown]
  - Neutropenia [Unknown]
  - Febrile neutropenia [Unknown]
  - Cardiac disorder [Unknown]
  - Fatigue [Unknown]
  - Anaemia [Unknown]
  - Thrombocytopenia [Unknown]
  - Nausea [Unknown]
  - Diarrhoea [Unknown]
  - Rash [Unknown]
  - Neuropathy peripheral [Unknown]
  - Constipation [Unknown]
  - Oedema [Unknown]
  - Myalgia [Unknown]
  - Arthralgia [Unknown]
  - Pain [Unknown]
  - Mucosal inflammation [Unknown]
  - Decreased appetite [Unknown]
  - Headache [Unknown]
  - Hot flush [Unknown]
  - Pyrexia [Unknown]
  - Vomiting [Unknown]
  - Dyspnoea [Unknown]
